FAERS Safety Report 8954537 (Version 2)
Quarter: 2012Q4

REPORT INFORMATION
  Report Type: 
  Country: JP (occurrence: JP)
  Receive Date: 20121210
  Receipt Date: 20121217
  Transmission Date: 20130627
  Serious: Yes (Other)
  Sender: FDA-Public Use
  Company Number: PHHY2012JP082214

PATIENT
  Age: 37 Year
  Sex: Male

DRUGS (1)
  1. NEORAL [Suspect]
     Indication: PSORIASIS
     Dosage: 200 mg, daily
     Route: 048
     Dates: start: 20111102, end: 20111212

REACTIONS (1)
  - Hyperlipidaemia [Recovering/Resolving]
